FAERS Safety Report 7176817-X (Version None)
Quarter: 2010Q4

REPORT INFORMATION
  Report Type: 
  Country: None (occurrence: None)
  Receive Date: 20101220
  Receipt Date: 20101213
  Transmission Date: 20110411
  Serious: Yes (Other)
  Sender: FDA-Public Use
  Company Number: US-BRISTOL-MYERS SQUIBB COMPANY-15439326

PATIENT

DRUGS (1)
  1. ORENCIA [Suspect]
     Dosage: DURATION:1YR

REACTIONS (1)
  - AMYOTROPHIC LATERAL SCLEROSIS [None]
